FAERS Safety Report 4364790-9 (Version None)
Quarter: 2004Q2

REPORT INFORMATION
  Report Type: 
  Country: None (occurrence: None)
  Receive Date: 20040526
  Receipt Date: 20030331
  Transmission Date: 20050107
  Serious: No
  Sender: FDA-Public Use
  Company Number: US-GLAXOSMITHKLINE-A0403509A

PATIENT
  Age: 48 Year
  Sex: Female

DRUGS (5)
  1. LOTRONEX [Suspect]
     Indication: IRRITABLE BOWEL SYNDROME
     Route: 048
     Dates: start: 20000401, end: 20001001
  2. LIBRAX [Concomitant]
  3. PRILOSEC [Concomitant]
  4. ATENOLOL [Concomitant]
  5. REGLAN [Concomitant]

REACTIONS (1)
  - ABDOMINAL PAIN UPPER [None]
